FAERS Safety Report 9665925 (Version 1)
Quarter: 2013Q4

REPORT INFORMATION
  Report Type: Spontaneous
  Country: US (occurrence: None)
  Receive Date: 20131101
  Receipt Date: 20131101
  Transmission Date: 20140711
  Serious: No
  Sender: FDA-Public Use
  Company Number: None

PATIENT
  Age: 79 Year
  Sex: Female
  Weight: 68.95 kg

DRUGS (2)
  1. KETOCONOZOLE [Suspect]
     Indication: PRURITUS
     Dosage: KETOCONAZOLE
     Dates: start: 20130717, end: 20131011
  2. KETOCONOZOLE [Suspect]
     Indication: PRURITUS
     Dosage: KETOCONAZOLE
     Dates: start: 20130717, end: 20131011

REACTIONS (1)
  - Alopecia [None]
